FAERS Safety Report 6034008-X (Version None)
Quarter: 2009Q1

REPORT INFORMATION
  Report Type: 
  Country: None (occurrence: None)
  Receive Date: 20090112
  Receipt Date: 20081222
  Transmission Date: 20090719
  Serious: Yes (Hospitalization)
  Sender: FDA-Public Use
  Company Number: PHHY2008JP33172

PATIENT
  Sex: Male
  Weight: 75 kg

DRUGS (9)
  1. DIOVAN [Suspect]
     Indication: HYPERTENSION
     Dosage: 160 MG, BID
     Route: 048
     Dates: start: 20071210
  2. NORVASC [Concomitant]
     Indication: HYPERTENSION
     Dosage: 5 MG
     Route: 048
     Dates: start: 20020401
  3. NORVASC [Concomitant]
     Dosage: 10 MG
     Route: 048
  4. OLMETEC [Concomitant]
     Indication: HYPERTENSION
     Dosage: UNK
     Route: 048
     Dates: start: 20051011, end: 20071209
  5. MICARDIS [Concomitant]
     Indication: HYPERTENSION
     Dosage: UNK
     Route: 048
     Dates: start: 20051011, end: 20071209
  6. LASIX [Concomitant]
     Indication: HYPERTENSION
     Dosage: UNK
     Route: 048
     Dates: start: 20080728
  7. PENFILL R [Concomitant]
     Dosage: UNK
     Route: 058
     Dates: start: 20070514
  8. CELTECT [Concomitant]
     Dosage: UNK
     Route: 048
     Dates: start: 20070205
  9. ZYLORIC ^FRESENIUS^ [Concomitant]
     Dosage: UNK
     Route: 048
     Dates: start: 20080728

REACTIONS (4)
  - BLOOD CHOLESTEROL DECREASED [None]
  - HIGH DENSITY LIPOPROTEIN DECREASED [None]
  - RENAL FAILURE ACUTE [None]
  - RENAL IMPAIRMENT [None]
